FAERS Safety Report 7942189-3 (Version None)
Quarter: 2011Q4

REPORT INFORMATION
  Report Type: 
  Country: None (occurrence: None)
  Receive Date: 20111122
  Receipt Date: 20111110
  Transmission Date: 20120403
  Serious: Yes (Hospitalization)
  Sender: FDA-Public Use
  Company Number: 2011MA016510

PATIENT
  Age: 71 Year
  Sex: Female

DRUGS (4)
  1. CODEINE SULFATE [Concomitant]
  2. PARACETAMOL [Concomitant]
  3. DICLOFENAC SODIUM [Suspect]
     Indication: PAIN
     Dosage: 50 MG;TID;PO
     Route: 048
     Dates: start: 20111019, end: 20111022
  4. XARELTO [Suspect]
     Dosage: 10 MG;QD;PO
     Route: 048
     Dates: start: 20111019, end: 20111022

REACTIONS (2)
  - HIATUS HERNIA [None]
  - REFLUX GASTRITIS [None]
